FAERS Safety Report 19069259 (Version 3)
Quarter: 2021Q2

REPORT INFORMATION
  Report Type: Other
  Country: FR (occurrence: FR)
  Receive Date: 20210329
  Receipt Date: 20210421
  Transmission Date: 20210717
  Serious: Yes (Other)
  Sender: FDA-Public Use
  Company Number: FR-ROCHE-2555616

PATIENT
  Age: 39 Year
  Sex: Male
  Weight: 80 kg

DRUGS (28)
  1. INNOHEP [Concomitant]
     Active Substance: TINZAPARIN SODIUM
     Dates: start: 20190505, end: 20191128
  2. CALCIUM ALGINATE [Concomitant]
     Active Substance: CALCIUM ALGINATE
     Dates: start: 20190827
  3. ROZEX (METRONIDAZOLE) [Concomitant]
     Active Substance: METRONIDAZOLE
     Indication: RASH
     Dates: start: 20190607, end: 20200217
  4. AUGMENTIN [Concomitant]
     Active Substance: AMOXICILLIN\CLAVULANATE POTASSIUM
     Indication: PROPHYLAXIS
  5. VITAMINE B12 [Concomitant]
     Active Substance: CYANOCOBALAMIN
     Dates: start: 20200805, end: 20201013
  6. ACIDE FOLIQUE [Concomitant]
     Active Substance: FOLIC ACID
  7. SOLU?MEDROL [Concomitant]
     Active Substance: METHYLPREDNISOLONE SODIUM SUCCINATE
  8. OXYNORM [Concomitant]
     Active Substance: OXYCODONE HYDROCHLORIDE
     Dosage: PRN AS NEEDED
     Dates: start: 20190823
  9. PRIMPERAN [Concomitant]
     Active Substance: METOCLOPRAMIDE HYDROCHLORIDE
     Dates: start: 20200805
  10. HYDROCORTISONE. [Concomitant]
     Active Substance: HYDROCORTISONE
     Dates: start: 20201103
  11. PARACETAMOL [Concomitant]
     Active Substance: ACETAMINOPHEN
     Dates: start: 20200421, end: 20201013
  12. PROCAINE [Concomitant]
     Active Substance: PROCAINE
     Dates: start: 20200819
  13. GEMCITABINE. [Concomitant]
     Active Substance: GEMCITABINE
     Dates: start: 20210216, end: 20210216
  14. LANSOPRAZOLE. [Concomitant]
     Active Substance: LANSOPRAZOLE
  15. ELIQUIS [Concomitant]
     Active Substance: APIXABAN
     Dates: start: 20191128
  16. EMEND [Concomitant]
     Active Substance: APREPITANT
     Dates: start: 20200805
  17. FORLAX [Concomitant]
     Active Substance: POLYETHYLENE GLYCOL 4000
     Dates: start: 20200805
  18. ALIMTA [Concomitant]
     Active Substance: PEMETREXED DISODIUM
     Dates: start: 20200813, end: 20210126
  19. CARBOPLATINE [Concomitant]
     Active Substance: CARBOPLATIN
     Indication: NEOPLASM MALIGNANT
  20. SODIUM BICARBONATE. [Concomitant]
     Active Substance: SODIUM BICARBONATE
     Dates: start: 20200814
  21. TOPALGIC (FRANCE) [Concomitant]
     Active Substance: TRAMADOL HYDROCHLORIDE
     Dates: start: 20200421
  22. TRAMADOL. [Concomitant]
     Active Substance: TRAMADOL
     Dates: start: 20200512, end: 20201013
  23. DOCETAXEL. [Concomitant]
     Active Substance: DOCETAXEL
     Indication: NEOPLASM MALIGNANT
  24. ATEZOLIZUMAB. [Suspect]
     Active Substance: ATEZOLIZUMAB
     Indication: NON-SMALL CELL LUNG CANCER METASTATIC
     Dosage: ON 05/NOV/2019, 26/NOV/2019, 17/DEC/2019, 07/JAN/2020 AND 28/JAN/2020, MOST RECENT DOSE OF ATEZOLIZU
     Route: 041
     Dates: start: 20191015
  25. DEXERYL (FRANCE) [Concomitant]
     Active Substance: GLYCERIN\MINERAL OIL\PETROLATUM
  26. OXYCONTIN [Concomitant]
     Active Substance: OXYCODONE HYDROCHLORIDE
     Dates: start: 20190906
  27. KETODERM (FRANCE) [Concomitant]
     Indication: RASH
     Dates: start: 20200218
  28. MOVICOL [Concomitant]
     Active Substance: POLYETHYLENE GLYCOL 3350\POTASSIUM CHLORIDE\SODIUM BICARBONATE\SODIUM CHLORIDE

REACTIONS (2)
  - Arthralgia [Not Recovered/Not Resolved]
  - Hypertrophic osteoarthropathy [Not Recovered/Not Resolved]

NARRATIVE: CASE EVENT DATE: 20200128
